FAERS Safety Report 7376041-1 (Version None)
Quarter: 2011Q1

REPORT INFORMATION
  Report Type: 
  Country: None (occurrence: None)
  Receive Date: 20110325
  Receipt Date: 20110322
  Transmission Date: 20110831
  Serious: Yes (Other)
  Sender: FDA-Public Use
  Company Number: GB-MERCK-1103GBR00054

PATIENT
  Age: 95 Year
  Sex: Male

DRUGS (8)
  1. PRINIVIL [Suspect]
     Indication: HYPERTENSION
     Route: 048
     Dates: start: 20060522, end: 20060618
  2. ACETAMINOPHEN [Concomitant]
     Indication: PAIN
     Route: 065
     Dates: start: 20070116
  3. PREGABALIN [Suspect]
     Route: 065
     Dates: start: 20110201
  4. OMEPRAZOLE [Concomitant]
     Indication: GASTROOESOPHAGEAL REFLUX DISEASE
     Route: 065
     Dates: start: 20100308
  5. FENTANYL [Concomitant]
     Indication: PAIN
     Route: 061
     Dates: start: 20110308
  6. PREGABALIN [Suspect]
     Route: 065
     Dates: start: 20110219
  7. AMITRIPTYLINE HYDROCHLORIDE [Concomitant]
     Indication: DEPRESSION
     Route: 065
     Dates: start: 20110214, end: 20110215
  8. PRINIVIL [Suspect]
     Route: 048
     Dates: start: 20060619

REACTIONS (4)
  - HALLUCINATION [None]
  - FALL [None]
  - DEPRESSION [None]
  - SYNCOPE [None]
